FAERS Safety Report 17781351 (Version 1)
Quarter: 2020Q2

REPORT INFORMATION
  Report Type: Spontaneous
  Country: CA (occurrence: CA)
  Receive Date: 20200513
  Receipt Date: 20200513
  Transmission Date: 20200714
  Serious: Yes (Other)
  Sender: FDA-Public Use
  Company Number: NVSC2020CA125393

PATIENT
  Age: 4 Week
  Sex: Female

DRUGS (4)
  1. ATROPINE. [Concomitant]
     Active Substance: ATROPINE
     Indication: KERATECTOMY
     Dosage: 0.5 %
     Route: 065
  2. DEXAMETHASONE. [Suspect]
     Active Substance: DEXAMETHASONE
     Indication: PRODUCT USED FOR UNKNOWN INDICATION
     Dosage: 0.1 %
     Route: 065
  3. MOXIFLOXACIN. [Concomitant]
     Active Substance: MOXIFLOXACIN
     Indication: KERATECTOMY
     Dosage: UNK
     Route: 065
  4. PREDNISOLONE ACETATE. [Suspect]
     Active Substance: PREDNISOLONE ACETATE
     Indication: PRODUCT USED FOR UNKNOWN INDICATION
     Dosage: 1 %
     Route: 065

REACTIONS (2)
  - Intraocular pressure increased [Unknown]
  - Glaucoma [Unknown]
